FAERS Safety Report 11727304 (Version 3)
Quarter: 2015Q4

REPORT INFORMATION
  Report Type: Spontaneous
  Country: JP (occurrence: JP)
  Receive Date: 20151112
  Receipt Date: 20151203
  Transmission Date: 20160304
  Serious: Yes (Other)
  Sender: FDA-Public Use
  Company Number: JP-JNJFOC-20151111022

PATIENT
  Age: 81 Year
  Sex: Female
  Weight: 55 kg

DRUGS (12)
  1. CANAGLU [Suspect]
     Active Substance: CANAGLIFLOZIN
     Indication: DIABETES MELLITUS
     Route: 048
     Dates: start: 201509, end: 20151023
  2. GLIMEPIRIDE. [Concomitant]
     Active Substance: GLIMEPIRIDE
     Indication: DIABETES MELLITUS
     Route: 048
  3. CARBOPLATIN. [Concomitant]
     Active Substance: CARBOPLATIN
     Indication: UTERINE CANCER
     Route: 042
     Dates: start: 20151001, end: 20151001
  4. DEXART [Concomitant]
     Active Substance: DEXAMETHASONE SODIUM PHOSPHATE
     Indication: UTERINE CANCER
     Route: 042
     Dates: start: 20151001, end: 20151001
  5. LOXONIN [Concomitant]
     Active Substance: LOXOPROFEN SODIUM
     Indication: UTERINE CANCER
     Route: 048
     Dates: start: 20151013, end: 20151023
  6. GLACTIV [Concomitant]
     Active Substance: SITAGLIPTIN
     Route: 048
     Dates: end: 201509
  7. PITAVASTATIN CA [Concomitant]
     Indication: DYSLIPIDAEMIA
     Route: 048
     Dates: end: 20151023
  8. PACLITAXEL. [Concomitant]
     Active Substance: PACLITAXEL
     Indication: UTERINE CANCER
     Route: 042
     Dates: start: 20151001, end: 20151001
  9. KYTRIL [Concomitant]
     Active Substance: GRANISETRON HYDROCHLORIDE
     Indication: UTERINE CANCER
     Route: 042
     Dates: start: 20151001, end: 20151001
  10. GOSHAJINKIGAN [Concomitant]
     Active Substance: HERBALS
     Indication: UTERINE CANCER
     Route: 048
     Dates: start: 20151013, end: 20151023
  11. ACTOS [Concomitant]
     Active Substance: PIOGLITAZONE HYDROCHLORIDE
     Route: 048
     Dates: end: 201509
  12. EDIROL [Concomitant]
     Active Substance: ELDECALCITOL
     Indication: OSTEOPOROSIS
     Route: 048
     Dates: end: 20151023

REACTIONS (1)
  - Cerebral infarction [Recovering/Resolving]

NARRATIVE: CASE EVENT DATE: 20151022
